FAERS Safety Report 8615864-5 (Version None)
Quarter: 2012Q3

REPORT INFORMATION
  Report Type: 
  Country: None (occurrence: None)
  Receive Date: 20120823
  Receipt Date: 20120814
  Transmission Date: 20120928
  Serious: Yes (Other)
  Sender: FDA-Public Use
  Company Number: SK-ROCHE-1098170

PATIENT
  Age: 60 Year
  Sex: Male

DRUGS (2)
  1. LUCENTIS [Suspect]
     Indication: AGE-RELATED MACULAR DEGENERATION
     Route: 050
  2. LUCENTIS [Suspect]
     Route: 050
     Dates: start: 20120213, end: 20120213

REACTIONS (3)
  - RETINAL DETACHMENT [None]
  - VITREOUS DISORDER [None]
  - RETINAL TEAR [None]
